FAERS Safety Report 5411008-1 (Version None)
Quarter: 2007Q3

REPORT INFORMATION
  Report Type: 
  Country: None (occurrence: None)
  Receive Date: 20070713
  Receipt Date: 20070606
  Transmission Date: 20080115
  Serious: No
  Sender: FDA-Public Use
  Company Number: 2007SP002139

PATIENT
  Age: 8 Year
  Sex: Male
  Weight: 90.7194 kg

DRUGS (5)
  1. LUNESTA [Suspect]
     Indication: INSOMNIA
     Dosage: 1 MG;HS;ORAL
     Route: 048
     Dates: start: 20070523, end: 20070603
  2. METFORMIN HCL [Concomitant]
  3. GLYBURIDE [Concomitant]
  4. PIOGLITAZONE [Concomitant]
  5. ATORVASTATIN CALCIUM [Concomitant]

REACTIONS (3)
  - DEPRESSION [None]
  - DIZZINESS [None]
  - HEADACHE [None]
